FAERS Safety Report 25221603 (Version 1)
Quarter: 2025Q2

REPORT INFORMATION
  Report Type: Spontaneous
  Country: US (occurrence: US)
  Receive Date: 20250421
  Receipt Date: 20250421
  Transmission Date: 20250716
  Serious: No
  Sender: SANOFI AVENTIS
  Company Number: US-SA-2025SA113687

PATIENT
  Age: 55 Year
  Sex: Male
  Weight: 90.91 kg

DRUGS (4)
  1. DUPIXENT [Suspect]
     Active Substance: DUPILUMAB
     Indication: Dermatitis atopic
     Dosage: 300 MG, QOW
     Route: 058
  2. DUPIXENT [Suspect]
     Active Substance: DUPILUMAB
     Route: 058
  3. TACROLIMUS [Concomitant]
     Active Substance: TACROLIMUS
  4. DESONIDE [Concomitant]
     Active Substance: DESONIDE

REACTIONS (1)
  - Product preparation issue [Unknown]
